FAERS Safety Report 11539798 (Version 4)
Quarter: 2016Q1

REPORT INFORMATION
  Report Type: Report from Study
  Country: BR (occurrence: BR)
  Receive Date: 20150923
  Receipt Date: 20160223
  Transmission Date: 20160525
  Serious: Yes (Hospitalization, Disabling)
  Sender: FDA-Public Use
  Company Number: PHHY2015BR114692

PATIENT
  Age: 78 Year
  Sex: Female
  Weight: 80 kg

DRUGS (1)
  1. ACLASTA [Suspect]
     Active Substance: ZOLEDRONIC ACID
     Indication: OSTEOPOROSIS
     Dosage: 5 MG, Q12MO
     Route: 042
     Dates: start: 20131009

REACTIONS (4)
  - Cerebrovascular accident [Unknown]
  - General physical health deterioration [Unknown]
  - Malaise [Unknown]
  - Head discomfort [Unknown]

NARRATIVE: CASE EVENT DATE: 201508
